FAERS Safety Report 15366484 (Version 1)
Quarter: 2018Q3

REPORT INFORMATION
  Report Type: Spontaneous
  Country: US (occurrence: US)
  Receive Date: 20180831
  Receipt Date: 20180831
  Transmission Date: 20181010
  Serious: Yes (Hospitalization)
  Sender: FDA-Public Use
  Company Number: None

PATIENT
  Age: 91 Year
  Sex: Female
  Weight: 70 kg

DRUGS (9)
  1. MELOXICAM 15 MG [Concomitant]
     Active Substance: MELOXICAM
  2. TRAMADOL 50 MG [Concomitant]
     Active Substance: TRAMADOL
  3. ALPRAZOLAM 0.25 MG [Concomitant]
     Active Substance: ALPRAZOLAM
  4. MIRALAX 17 GM [Concomitant]
  5. PANTOPRAZOLE 40 MG [Concomitant]
     Active Substance: PANTOPRAZOLE SODIUM
  6. ACETAMINOPHEN 650 MG [Concomitant]
     Active Substance: ACETAMINOPHEN
  7. APIXABAN [Suspect]
     Active Substance: APIXABAN
     Indication: DEEP VEIN THROMBOSIS
     Route: 048
  8. PRAMIPEXOLE 0.125 MG [Concomitant]
     Active Substance: PRAMIPEXOLE
  9. STUDY DRUG: COCOA EXTRACT OR PLACEBO [Concomitant]

REACTIONS (4)
  - Rectal haemorrhage [None]
  - Pain in extremity [None]
  - Deep vein thrombosis [None]
  - Haemoglobin decreased [None]

NARRATIVE: CASE EVENT DATE: 20180620
